FAERS Safety Report 8079568-2 (Version None)
Quarter: 2012Q1

REPORT INFORMATION
  Report Type: 
  Country: None (occurrence: None)
  Receive Date: 20120128
  Receipt Date: 20110829
  Transmission Date: 20120608
  Serious: No
  Sender: FDA-Public Use
  Company Number: US-ABBOTT-11P-163-0850244-00

PATIENT
  Sex: Female
  Weight: 86.26 kg

DRUGS (14)
  1. METHOTREXATE [Concomitant]
     Indication: PSORIASIS
  2. LYRICA [Concomitant]
     Indication: MYALGIA
  3. PRILOSEC [Concomitant]
     Indication: IRRITABLE BOWEL SYNDROME
  4. HUMIRA [Suspect]
     Indication: PSORIATIC ARTHROPATHY
     Dates: end: 20110701
  5. FLEXERIL [Concomitant]
     Indication: MUSCLE TIGHTNESS
  6. SYNTHROID [Concomitant]
     Indication: HYPOTHYROIDISM
  7. PLAVIX [Concomitant]
     Indication: CORONARY ARTERY OCCLUSION
  8. AMBIEN [Concomitant]
     Indication: INSOMNIA
  9. LORTAB [Concomitant]
     Indication: BACK PAIN
  10. LEXAPRO [Concomitant]
     Indication: DEPRESSION
  11. FOLIC ACID [Concomitant]
     Indication: VITAMIN SUPPLEMENTATION
  12. WELLBUTRIN [Concomitant]
     Indication: DEPRESSION
  13. HUMIRA [Suspect]
     Dates: start: 20110801
  14. LYRICA [Concomitant]
     Indication: FIBROMYALGIA

REACTIONS (7)
  - JOINT EFFUSION [None]
  - ARTHRALGIA [None]
  - RASH [None]
  - INTENTIONAL DRUG MISUSE [None]
  - GAIT DISTURBANCE [None]
  - JOINT RANGE OF MOTION DECREASED [None]
  - FUNGAL INFECTION [None]
